FAERS Safety Report 7767901-8 (Version None)
Quarter: 2011Q3

REPORT INFORMATION
  Report Type: 
  Country: None (occurrence: None)
  Receive Date: 20110922
  Receipt Date: 20100922
  Transmission Date: 20111222
  Serious: No
  Sender: FDA-Public Use
  Company Number: US-ASTRAZENECA-2010SE41041

PATIENT
  Age: 52 Year
  Sex: Female
  Weight: 46.7 kg

DRUGS (4)
  1. SEROQUEL [Suspect]
     Indication: DEPRESSION
     Route: 048
     Dates: start: 20090101
  2. SEROQUEL [Suspect]
     Route: 048
     Dates: start: 20100101
  3. SIMBALTA [Concomitant]
  4. VITAMIN TAB [Concomitant]

REACTIONS (8)
  - FATIGUE [None]
  - HEADACHE [None]
  - DYSPHAGIA [None]
  - HYPERSOMNIA [None]
  - SOMNOLENCE [None]
  - ABDOMINAL PAIN UPPER [None]
  - DRY MOUTH [None]
  - WRONG TECHNIQUE IN DRUG USAGE PROCESS [None]
